FAERS Safety Report 14306463 (Version 1)
Quarter: 2017Q4

REPORT INFORMATION
  Report Type: Report from Study
  Country: US (occurrence: US)
  Receive Date: 20171220
  Receipt Date: 20171220
  Transmission Date: 20180321
  Serious: Yes (Death, Hospitalization)
  Sender: FDA-Public Use
  Company Number: US-TORRENT-00005522

PATIENT
  Age: 5 Year
  Sex: Female

DRUGS (1)
  1. CARBAMAZEPINE. [Suspect]
     Active Substance: CARBAMAZEPINE
     Indication: SEIZURE
     Route: 048

REACTIONS (6)
  - Toxicity to various agents [Fatal]
  - Unresponsive to stimuli [Unknown]
  - Brain death [Fatal]
  - Neurological symptom [Unknown]
  - Cardiac output decreased [Unknown]
  - Hypotension [Unknown]
